FAERS Safety Report 5085843-6 (Version None)
Quarter: 2006Q3

REPORT INFORMATION
  Report Type: 
  Country: None (occurrence: None)
  Receive Date: 20060817
  Receipt Date: 20060808
  Transmission Date: 20061208
  Serious: No
  Sender: FDA-Public Use
  Company Number: 2006VX001040

PATIENT
  Age: 58 Year
  Sex: Male

DRUGS (3)
  1. INTERFERON ALFACON-1 [Suspect]
     Indication: HEPATITIS C
     Dosage: 15 UG;QD;SC
     Route: 058
     Dates: start: 20060721, end: 20060726
  2. RIBAVIRIN [Concomitant]
  3. PEG-INTRON [Concomitant]

REACTIONS (11)
  - AMMONIA INCREASED [None]
  - BLOOD POTASSIUM DECREASED [None]
  - CHILLS [None]
  - EPISTAXIS [None]
  - EYE HAEMORRHAGE [None]
  - NAUSEA [None]
  - PLATELET COUNT INCREASED [None]
  - PYREXIA [None]
  - TRANSIENT ISCHAEMIC ATTACK [None]
  - VITAMIN B COMPLEX DEFICIENCY [None]
  - VOMITING [None]
